FAERS Safety Report 5924889-X (Version None)
Quarter: 2008Q4

REPORT INFORMATION
  Report Type: 
  Country: None (occurrence: None)
  Receive Date: 20081017
  Receipt Date: 20081017
  Transmission Date: 20090506
  Serious: Yes (Hospitalization)
  Sender: FDA-Public Use
  Company Number: None

PATIENT
  Age: 35 Year
  Sex: Female
  Weight: 78.7 kg

DRUGS (1)
  1. MORPHINE [Suspect]
     Indication: PROCEDURAL PAIN
     Dosage: MORPHINE PCA IV DRIP; MORPHINE PCA PCA BOOSTER IV BOLUS
     Route: 041

REACTIONS (2)
  - CONVULSION [None]
  - PO2 DECREASED [None]
